FAERS Safety Report 6766857-4 (Version None)
Quarter: 2010Q2

REPORT INFORMATION
  Report Type: 
  Country: None (occurrence: None)
  Receive Date: 20100611
  Receipt Date: 20100601
  Transmission Date: 20101027
  Serious: Yes (Hospitalization)
  Sender: FDA-Public Use
  Company Number: JP-PFIZER INC-2010034944

PATIENT
  Age: 74 Year
  Sex: Female
  Weight: 46 kg

DRUGS (18)
  1. CELECOXIB [Suspect]
     Indication: ARTHRITIS
     Dosage: 100 MG, 2X/DAY
     Route: 048
     Dates: start: 20080207, end: 20081202
  2. MIKAMETAN [Suspect]
     Indication: ARTHRITIS
     Dosage: 25 MG, UID, 1X/DAY
     Route: 054
     Dates: start: 20080207, end: 20080908
  3. MIKAMETAN [Suspect]
     Dosage: 25 MG, 2X/DAY
     Route: 054
     Dates: start: 20080909, end: 20081029
  4. PREDNISOLONE [Suspect]
     Indication: ARTHRITIS
     Dosage: 5 MG, UID, 1X/DAY
     Route: 048
     Dates: start: 20080207, end: 20081202
  5. CLINORIL [Suspect]
     Indication: ARTHRITIS
     Dosage: 100 MG, 2X/DAY
     Route: 048
     Dates: start: 20080207, end: 20081202
  6. OMEPRAZOLE [Concomitant]
     Dosage: UNK
     Route: 048
     Dates: start: 20080207, end: 20081202
  7. ASPIRIN [Concomitant]
     Dosage: UNK
     Route: 048
     Dates: start: 20080207, end: 20081202
  8. CONIEL [Concomitant]
     Dosage: UNK
     Route: 048
     Dates: start: 20080207, end: 20081202
  9. FLUVASTATIN [Concomitant]
     Dosage: UNK
     Route: 048
     Dates: start: 20080207, end: 20081202
  10. VALSARTAN [Concomitant]
     Dosage: UNK
     Route: 048
     Dates: start: 20080207, end: 20081202
  11. CLARUTE [Concomitant]
     Dosage: UNK
     Route: 048
     Dates: start: 20080207, end: 20081202
  12. SELBEX [Concomitant]
     Dosage: UNK
     Route: 048
     Dates: start: 20080207, end: 20081202
  13. ALFACALCIDOL [Concomitant]
     Dosage: UNK
     Route: 048
     Dates: start: 20080207, end: 20081202
  14. RISEDRONATE SODIUM [Concomitant]
     Dosage: UNK
     Route: 048
     Dates: start: 20080207, end: 20081202
  15. URINORM [Concomitant]
     Dosage: UNK
     Route: 048
     Dates: start: 20080207, end: 20081202
  16. SENNARIDE [Concomitant]
     Dosage: UNK
     Route: 048
     Dates: start: 20080207, end: 20081202
  17. TORASEMIDE [Concomitant]
     Dosage: UNK
     Route: 048
     Dates: start: 20080207, end: 20081202
  18. ISOSORBIDE DINITRATE [Concomitant]
     Dosage: UNK
     Dates: start: 20080207, end: 20081202

REACTIONS (1)
  - PYLORIC STENOSIS [None]
